FAERS Safety Report 16709101 (Version 1)
Quarter: 2019Q3

REPORT INFORMATION
  Report Type: Spontaneous
  Country: NL (occurrence: NL)
  Receive Date: 20190816
  Receipt Date: 20190816
  Transmission Date: 20191004
  Serious: Yes (Hospitalization)
  Sender: FDA-Public Use
  Company Number: NL-TEVA-2019-NL-1091927

PATIENT
  Age: 47 Year
  Sex: Female
  Weight: 65 kg

DRUGS (9)
  1. BEVACIZUMAB. [Concomitant]
     Active Substance: BEVACIZUMAB
     Dosage: 1XPER 3 WEEKS, 1 DOSAGE FORM
     Dates: start: 20190305
  2. METOCLOPRAMIDE TABLET 10 MG [Concomitant]
     Dosage: IF NECESSARY 1 PIECE, MAXIMUM 3 X PER DAY DURING TREATMENT, 10 MG
  3. CAPECITABINE FILMOMHULDE TABLET, 150MG [Suspect]
     Active Substance: CAPECITABINE
     Indication: RECTOSIGMOID CANCER METASTATIC
     Dosage: 2DD3 (+ TABLET OF 150 MG 2DD2): TOTAL 2 X PER DAY 1800 MG DAY 1-14, 300 MG
     Dates: start: 20190305, end: 20190708
  4. AMITRIPTYLINE HCL TABLET 10MG [Concomitant]
     Dosage: 1DD3, 30 MG
  5. CAPECITABINE FILMOMHULDE TABLET, 500 MG (MILLIGRAM) [Suspect]
     Active Substance: CAPECITABINE
     Indication: RECTOSIGMOID CANCER METASTATIC
     Dosage: 2DD3 (+ TABLET OF 150 MG 2DD2): TOTAL 2 X PER DAY 1800 MG DAY 1-14, 1500 MG
     Dates: start: 20190305, end: 20190708
  6. PREGABALINE CAPSULE 75MG [Concomitant]
     Dosage: 1DD1, 75 MG
  7. OXAZEPAM TABLET 10MG [Concomitant]
     Dosage: 1DD1, 10 MG
  8. OXALIPLATIN. [Concomitant]
     Active Substance: OXALIPLATIN
     Dosage: 1XPER 3 WEEKS, 1 DOSAGE FORM
     Dates: start: 20190305
  9. OMEPRAZOL TABLET MSR 40MG [Concomitant]
     Active Substance: OMEPRAZOLE
     Dosage: 1DD1, 40 MG

REACTIONS (5)
  - Dehydration [Recovering/Resolving]
  - Vomiting [Recovering/Resolving]
  - Diarrhoea [Recovering/Resolving]
  - Hypokalaemia [Recovering/Resolving]
  - Hyponatraemia [Recovering/Resolving]

NARRATIVE: CASE EVENT DATE: 20190708
